FAERS Safety Report 8222472-7 (Version None)
Quarter: 2012Q1

REPORT INFORMATION
  Report Type: 
  Country: None (occurrence: None)
  Receive Date: 20120320
  Receipt Date: 20120312
  Transmission Date: 20120608
  Serious: Yes (Hospitalization)
  Sender: FDA-Public Use
  Company Number: US-BAYER-2011-101396

PATIENT
  Age: 18 Year
  Sex: Female
  Weight: 54.422 kg

DRUGS (3)
  1. ZANTAC [Concomitant]
     Route: 048
  2. SEASONIQUE [Concomitant]
     Route: 048
  3. YAZ [Suspect]
     Indication: ENDOMETRIOSIS
     Dosage: UNK
     Dates: start: 20090801, end: 20100101

REACTIONS (9)
  - GALLBLADDER INJURY [None]
  - INJURY [None]
  - PAIN [None]
  - GENERAL PHYSICAL HEALTH DETERIORATION [None]
  - ANHEDONIA [None]
  - BILIARY DYSKINESIA [None]
  - EMOTIONAL DISTRESS [None]
  - CHOLECYSTITIS CHRONIC [None]
  - ANXIETY [None]
